FAERS Safety Report 8490880-5 (Version None)
Quarter: 2012Q2

REPORT INFORMATION
  Report Type: 
  Country: None (occurrence: None)
  Receive Date: 20120628
  Receipt Date: 20120628
  Transmission Date: 20120825
  Serious: Yes (Life-Threatening, Hospitalization)
  Sender: FDA-Public Use
  Company Number: None

PATIENT
  Sex: Female
  Weight: 68.0396 kg

DRUGS (1)
  1. VIIBRYD [Suspect]
     Indication: DEPRESSION
     Dosage: 10 MG, 20 MG, 40 MG DAILY (7 DAYS)
     Dates: start: 20120111, end: 20120315

REACTIONS (4)
  - INSOMNIA [None]
  - AGGRESSION [None]
  - ACTIVITIES OF DAILY LIVING IMPAIRED [None]
  - HALLUCINATION [None]
